FAERS Safety Report 23674064 (Version 5)
Quarter: 2024Q3

REPORT INFORMATION
  Report Type: Spontaneous
  Country: US (occurrence: US)
  Receive Date: 20240326
  Receipt Date: 20240919
  Transmission Date: 20241016
  Serious: No
  Sender: PFIZER
  Company Number: US-PFIZER INC-PV202400039003

PATIENT
  Age: 67 Year
  Sex: Female

DRUGS (3)
  1. IBRANCE [Suspect]
     Active Substance: PALBOCICLIB
     Dosage: 75 MG, CYCLIC (ONCE A DAY, 3WEEKS ON AND 7 DAYS OFF)
  2. ANASTROZOLE [Concomitant]
     Active Substance: ANASTROZOLE
     Dosage: UNK
  3. FULVESTRANT [Concomitant]
     Active Substance: FULVESTRANT
     Dosage: UNK

REACTIONS (7)
  - Dizziness [Unknown]
  - Feeling abnormal [Unknown]
  - Dry mouth [Not Recovered/Not Resolved]
  - Dry skin [Unknown]
  - Neuralgia [Unknown]
  - Brain fog [Unknown]
  - Memory impairment [Unknown]
